FAERS Safety Report 5005058-7 (Version None)
Quarter: 2006Q2

REPORT INFORMATION
  Report Type: 
  Country: None (occurrence: None)
  Receive Date: 20060516
  Receipt Date: 20060516
  Transmission Date: 20061013
  Serious: Yes (Other)
  Sender: FDA-Public Use
  Company Number: None

PATIENT
  Weight: 78.9259 kg

DRUGS (5)
  1. REVLIMID [Suspect]
     Indication: PROSTATE CANCER
     Dosage: 10 MG   QD  PO
     Route: 048
     Dates: start: 20060221, end: 20060513
  2. LIPITOR [Concomitant]
  3. LEVOXYL [Concomitant]
  4. FLOMAX [Concomitant]
  5. ELIGARD [Concomitant]

REACTIONS (1)
  - LUNG INFILTRATION [None]
